FAERS Safety Report 9471746 (Version 2)
Quarter: 2013Q3

REPORT INFORMATION
  Report Type: Report from Study
  Country: US (occurrence: US)
  Receive Date: 20130822
  Receipt Date: 20130904
  Transmission Date: 20140515
  Serious: Yes (Hospitalization)
  Sender: FDA-Public Use
  Company Number: US-GLAXOSMITHKLINE-A1024325A

PATIENT
  Age: 57 Year
  Sex: Male
  Weight: 62.7 kg

DRUGS (2)
  1. TRAMETINIB [Suspect]
     Indication: NEOPLASM
     Dosage: 1.5MG PER DAY
     Route: 048
     Dates: start: 20121214
  2. INVESTIGATIONAL STUDY DRUG [Suspect]
     Indication: NEOPLASM
     Dosage: 60MG PER DAY
     Route: 048
     Dates: start: 20121214

REACTIONS (3)
  - Cystitis [Recovered/Resolved]
  - Hyperbilirubinaemia [Recovered/Resolved]
  - Pyrexia [Recovered/Resolved]
